FAERS Safety Report 24203096 (Version 1)
Quarter: 2024Q3

REPORT INFORMATION
  Report Type: Spontaneous
  Country: ES (occurrence: ES)
  Receive Date: 20240813
  Receipt Date: 20240813
  Transmission Date: 20241016
  Serious: Yes (Death, Other)
  Sender: DR REDDYS
  Company Number: ES-GERMAN-LIT/ESP/24/0011527

PATIENT
  Age: 41 Year
  Sex: Male

DRUGS (4)
  1. SORAFENIB [Suspect]
     Active Substance: SORAFENIB
     Indication: Huerthle cell carcinoma
  2. IODINE I-131 [Suspect]
     Active Substance: IODINE I-131
     Indication: Huerthle cell carcinoma
  3. LENVATINIB [Suspect]
     Active Substance: LENVATINIB
     Indication: Huerthle cell carcinoma
  4. LUTETIUM OXODOTREOTIDE LU-177 [Suspect]
     Active Substance: LUTETIUM OXODOTREOTIDE LU-177
     Indication: Huerthle cell carcinoma

REACTIONS (3)
  - Drug ineffective for unapproved indication [Fatal]
  - Malignant neoplasm progression [Fatal]
  - Drug intolerance [Unknown]
